FAERS Safety Report 13001644 (Version 2)
Quarter: 2016Q4

REPORT INFORMATION
  Report Type: Report from Study
  Country: None (occurrence: CA)
  Receive Date: 20161206
  Receipt Date: 20161213
  Transmission Date: 20170207
  Serious: Yes (Other)
  Sender: FDA-Public Use
  Company Number: CA-ABBVIE-16K-028-1797450-00

PATIENT
  Age: 60 Year
  Sex: Male
  Weight: 121 kg

DRUGS (3)
  1. HUMIRA [Suspect]
     Active Substance: ADALIMUMAB
     Indication: CROHN^S DISEASE
     Route: 058
     Dates: start: 20160829
  2. VITAMIN D [Suspect]
     Active Substance: CHOLECALCIFEROL
     Indication: PRODUCT USED FOR UNKNOWN INDICATION
     Route: 048
     Dates: start: 201611, end: 201611
  3. VITAMIN D [Suspect]
     Active Substance: CHOLECALCIFEROL
     Route: 048
     Dates: start: 20161125

REACTIONS (5)
  - Abdominal pain [Not Recovered/Not Resolved]
  - Intestinal fibrosis [Unknown]
  - Intestinal obstruction [Recovered/Resolved]
  - Abdominal discomfort [Not Recovered/Not Resolved]
  - Intestinal stenosis [Unknown]

NARRATIVE: CASE EVENT DATE: 2016
